FAERS Safety Report 7501208-9 (Version None)
Quarter: 2011Q2

REPORT INFORMATION
  Report Type: 
  Country: None (occurrence: None)
  Receive Date: 20110524
  Receipt Date: 20110518
  Transmission Date: 20111010
  Serious: Yes (Death, Other)
  Sender: FDA-Public Use
  Company Number: US-ROXANE LABORATORIES, INC.-2011-RO-00688RO

PATIENT
  Age: 76 Year
  Sex: Male

DRUGS (2)
  1. AZATHIOPRINE [Suspect]
     Indication: MYASTHENIA GRAVIS
  2. CORTICOSTEROIDS [Concomitant]
     Indication: MYASTHENIA GRAVIS

REACTIONS (2)
  - PNEUMOMEDIASTINUM [None]
  - PNEUMOCYSTIS JIROVECI PNEUMONIA [None]
